FAERS Safety Report 9750831 (Version 1)
Quarter: 2013Q4

REPORT INFORMATION
  Report Type: Spontaneous
  Country: US (occurrence: US)
  Receive Date: 20131212
  Receipt Date: 20131212
  Transmission Date: 20140711
  Serious: No
  Sender: FDA-Public Use
  Company Number: US-BIOGENIDEC-2013BI101063

PATIENT
  Age: 46 Year
  Sex: Female

DRUGS (8)
  1. TECFIDERA [Suspect]
     Indication: MULTIPLE SCLEROSIS
     Route: 048
     Dates: start: 20131001, end: 20131007
  2. TECFIDERA [Suspect]
     Indication: MULTIPLE SCLEROSIS
     Route: 048
     Dates: start: 20131008
  3. MIRALAX [Concomitant]
  4. FISH OIL [Concomitant]
  5. VITAMIN D [Concomitant]
  6. ZOLOFT [Concomitant]
  7. SYNTHROID [Concomitant]
  8. PRILOSEC [Concomitant]

REACTIONS (3)
  - Flushing [Recovered/Resolved]
  - Diarrhoea [Recovered/Resolved]
  - Nausea [Not Recovered/Not Resolved]
